FAERS Safety Report 9052794 (Version 1)
Quarter: 2013Q1

REPORT INFORMATION
  Report Type: Report from Study
  Country: NL (occurrence: NL)
  Receive Date: 20130207
  Receipt Date: 20130207
  Transmission Date: 20140127
  Serious: Yes (Other)
  Sender: FDA-Public Use
  Company Number: NL-TEVA-384786ISR

PATIENT
  Sex: Male

DRUGS (6)
  1. COPAXONE [Suspect]
     Dosage: 20 MILLIGRAM DAILY;
     Route: 058
     Dates: start: 19960710
  2. EXELON [Concomitant]
     Dosage: 3 MILLIGRAM DAILY;
     Route: 048
  3. TRIMETHOPRIM [Concomitant]
     Dosage: 100 MILLIGRAM DAILY;
     Route: 048
  4. VITAMIN D [Concomitant]
  5. ACTONEL [Concomitant]
  6. FOLINIC ACID [Concomitant]

REACTIONS (1)
  - Brain neoplasm benign [Not Recovered/Not Resolved]
